FAERS Safety Report 5823513-4 (Version None)
Quarter: 2008Q3

REPORT INFORMATION
  Report Type: 
  Country: None (occurrence: None)
  Receive Date: 20080725
  Receipt Date: 20080716
  Transmission Date: 20090109
  Serious: Yes (Other)
  Sender: FDA-Public Use
  Company Number: JP-PFIZER INC-2008051233

PATIENT
  Sex: Male

DRUGS (2)
  1. REVATIO [Suspect]
     Route: 048
  2. ALL OTHER THERAPEUTIC PRODUCTS [Suspect]

REACTIONS (1)
  - PLATELET COUNT DECREASED [None]
